FAERS Safety Report 4687173-0 (Version None)
Quarter: 2005Q2

REPORT INFORMATION
  Report Type: 
  Country: None (occurrence: None)
  Receive Date: 20050607
  Receipt Date: 20050523
  Transmission Date: 20051028
  Serious: Yes (Other)
  Sender: FDA-Public Use
  Company Number: 2004-118567-NL

PATIENT
  Sex: Female

DRUGS (2)
  1. NUVARING [Suspect]
     Indication: CONTRACEPTION
     Dosage: NI; VAGINAL
     Route: 067
     Dates: start: 20030101, end: 20030708
  2. MACROBID [Concomitant]

REACTIONS (11)
  - BLOOD PRESSURE INCREASED [None]
  - CAESAREAN SECTION [None]
  - DRUG INEFFECTIVE [None]
  - DYSPAREUNIA [None]
  - GASTRIC DISORDER [None]
  - MENSTRUAL DISCOMFORT [None]
  - METRORRHAGIA [None]
  - NAUSEA [None]
  - PREGNANCY WITH CONTRACEPTIVE DEVICE [None]
  - VAGINAL BURNING SENSATION [None]
  - VAGINAL PAIN [None]
